FAERS Safety Report 4303768-8 (Version None)
Quarter: 2004Q1

REPORT INFORMATION
  Report Type: 
  Country: None (occurrence: None)
  Receive Date: 20040223
  Receipt Date: 20040203
  Transmission Date: 20041129
  Serious: Yes (Other)
  Sender: FDA-Public Use
  Company Number: B0322030A

PATIENT
  Age: 36 Year
  Sex: Male

DRUGS (1)
  1. THIOGUANINE [Suspect]
     Dates: start: 20000201

REACTIONS (1)
  - NODULAR REGENERATIVE HYPERPLASIA [None]
